FAERS Safety Report 5001463-3 (Version None)
Quarter: 2006Q2

REPORT INFORMATION
  Report Type: 
  Country: None (occurrence: None)
  Receive Date: 20060512
  Receipt Date: 20050930
  Transmission Date: 20061013
  Serious: Yes (Hospitalization)
  Sender: FDA-Public Use
  Company Number: US-MERCK-0510USA01411

PATIENT
  Age: 66 Year
  Sex: Male
  Weight: 82 kg

DRUGS (1)
  1. VIOXX [Suspect]
     Indication: ARTHRITIS
     Route: 048
     Dates: start: 20030101, end: 20040901

REACTIONS (28)
  - ANORGASMIA [None]
  - ANXIETY DISORDER [None]
  - ARTERIAL OCCLUSIVE DISEASE [None]
  - ASTHENIA [None]
  - BACK PAIN [None]
  - BLOOD CREATININE INCREASED [None]
  - BLOOD UREA INCREASED [None]
  - BRONCHITIS [None]
  - BRONCHITIS ACUTE [None]
  - CARDIAC DISORDER [None]
  - CARDIAC STRESS TEST [None]
  - CELLULITIS [None]
  - CHEST DISCOMFORT [None]
  - COUGH [None]
  - DYSPNOEA [None]
  - DYSPNOEA EXERTIONAL [None]
  - ERECTILE DYSFUNCTION [None]
  - FALL [None]
  - FLUID OVERLOAD [None]
  - GASTROOESOPHAGEAL REFLUX DISEASE [None]
  - HYPERGLYCAEMIA [None]
  - HYPERTENSION [None]
  - OEDEMA PERIPHERAL [None]
  - PULMONARY OEDEMA [None]
  - RHINITIS SEASONAL [None]
  - SHOULDER PAIN [None]
  - SLEEP DISORDER [None]
  - UPPER RESPIRATORY TRACT INFECTION [None]
